FAERS Safety Report 8552387-6 (Version None)
Quarter: 2012Q3

REPORT INFORMATION
  Report Type: 
  Country: None (occurrence: None)
  Receive Date: 20120731
  Receipt Date: 20120725
  Transmission Date: 20120928
  Serious: Yes (Death)
  Sender: FDA-Public Use
  Company Number: US-CELGENEUS-163-21880-12052273

PATIENT
  Sex: Male
  Weight: 95.34 kg

DRUGS (7)
  1. REVLIMID [Suspect]
     Indication: MULTIPLE MYELOMA
     Dosage: 10 MILLIGRAM
     Route: 048
     Dates: start: 20101109
  2. VELCADE [Concomitant]
     Dosage: 3.5 MILLIGRAM
     Route: 041
  3. REVLIMID [Suspect]
     Dosage: 10 MILLIGRAM
     Route: 048
     Dates: start: 20120208, end: 20120319
  4. VICODIN ES [Concomitant]
     Dosage: 7.5MG/750MG
     Route: 065
  5. CYANOCOBALAMIN [Concomitant]
     Dosage: 3MG/35MG/2MG
     Route: 065
  6. AMBIEN CR [Concomitant]
     Dosage: 6.25 MILLIGRAM
     Route: 065
  7. KEPPRA [Concomitant]
     Dosage: 750 MILLIGRAM
     Route: 065

REACTIONS (3)
  - CARDIAC FAILURE CONGESTIVE [None]
  - MULTIPLE MYELOMA [None]
  - RENAL FAILURE [None]
